FAERS Safety Report 17500128 (Version 1)
Quarter: 2020Q1

REPORT INFORMATION
  Report Type: Spontaneous
  Country: IT (occurrence: IT)
  Receive Date: 20200305
  Receipt Date: 20200305
  Transmission Date: 20200409
  Serious: Yes (Hospitalization, Other)
  Sender: FDA-Public Use
  Company Number: IT-LUPIN PHARMACEUTICALS INC.-2020-01119

PATIENT
  Age: 5 Year

DRUGS (2)
  1. PHENYTOIN SODIUM. [Suspect]
     Active Substance: PHENYTOIN SODIUM
     Indication: PRODUCT USED FOR UNKNOWN INDICATION
     Dosage: 5 MILLIGRAM/KILOGRAM, BID
     Route: 042
  2. OMEPRAZOLE. [Interacting]
     Active Substance: OMEPRAZOLE
     Indication: PRODUCT USED FOR UNKNOWN INDICATION
     Dosage: 0.8 MILLIGRAM/KILOGRAM, QD
     Route: 042

REACTIONS (10)
  - Drug interaction [Unknown]
  - Tachypnoea [Recovered/Resolved]
  - Depressed level of consciousness [Recovering/Resolving]
  - Psychomotor hyperactivity [Recovering/Resolving]
  - Drug level above therapeutic [Recovered/Resolved]
  - Toxicity to various agents [Recovering/Resolving]
  - Hyperventilation [Recovering/Resolving]
  - Respiratory distress [Recovered/Resolved]
  - Extensor plantar response [Recovering/Resolving]
  - Nystagmus [Recovering/Resolving]
